FAERS Safety Report 13695256 (Version 1)
Quarter: 2017Q2

REPORT INFORMATION
  Report Type: Spontaneous
  Country: CH (occurrence: CH)
  Receive Date: 20170627
  Receipt Date: 20170627
  Transmission Date: 20170830
  Serious: Yes (Other)
  Sender: FDA-Public Use
  Company Number: CH-VIIV HEALTHCARE LIMITED-CH2017GSK094636

PATIENT
  Age: 51 Year
  Sex: Male

DRUGS (1)
  1. TRIUMEQ [Suspect]
     Active Substance: ABACAVIR SULFATE\DOLUTEGRAVIR SODIUM\LAMIVUDINE
     Indication: HIV INFECTION
     Dosage: UNK
     Route: 048
     Dates: start: 201505, end: 20170608

REACTIONS (11)
  - Inguinal hernia repair [Unknown]
  - Myosclerosis [Recovering/Resolving]
  - Tendon rupture [Unknown]
  - Nerve compression [Unknown]
  - Hypoaesthesia [Unknown]
  - Gait disturbance [Unknown]
  - Muscle rupture [Unknown]
  - Myalgia [Recovering/Resolving]
  - Inguinal hernia [Unknown]
  - Muscle spasms [Recovering/Resolving]
  - Sciatica [Unknown]

NARRATIVE: CASE EVENT DATE: 2016
